FAERS Safety Report 6544753-5 (Version None)
Quarter: 2010Q1

REPORT INFORMATION
  Report Type: 
  Country: None (occurrence: None)
  Receive Date: 20100121
  Receipt Date: 20100118
  Transmission Date: 20100710
  Serious: Yes (Other)
  Sender: FDA-Public Use
  Company Number: US-BAYER-201010705BCC

PATIENT
  Age: 82 Year
  Sex: Male
  Weight: 74 kg

DRUGS (9)
  1. ALEVE [Suspect]
     Indication: ARTHRITIS
     Dosage: TOTAL DAILY DOSE: 220 MG  UNIT DOSE: 220 MG
     Route: 048
     Dates: end: 20100116
  2. ALEVE [Suspect]
     Dosage: TOTAL DAILY DOSE: 220 MG  UNIT DOSE: 220 MG
     Route: 048
     Dates: start: 20100118
  3. WALGREENS ASPIRIN [Concomitant]
     Route: 065
  4. VITAMIN C [Concomitant]
     Route: 065
  5. VITAMIN D [Concomitant]
     Route: 065
  6. WALGREENS CALCIUM [Concomitant]
     Route: 065
  7. UNKNOWN ONE A DAY MULTIVITAMIN [Concomitant]
     Route: 065
  8. CRESTOR [Concomitant]
     Route: 065
  9. IRON [Concomitant]
     Route: 065

REACTIONS (1)
  - HAEMATOCHEZIA [None]
